FAERS Safety Report 19521218 (Version 1)
Quarter: 2021Q3

REPORT INFORMATION
  Report Type: Spontaneous
  Country: IL (occurrence: IL)
  Receive Date: 20210712
  Receipt Date: 20210712
  Transmission Date: 20211014
  Serious: Yes (Hospitalization, Other)
  Sender: FDA-Public Use
  Company Number: IL-PFIZER INC-2021807511

PATIENT
  Age: 50 Year
  Sex: Female

DRUGS (13)
  1. DOXORUBICIN HCL [Suspect]
     Active Substance: DOXORUBICIN HYDROCHLORIDE
     Indication: PERIPHERAL PRIMITIVE NEUROECTODERMAL TUMOUR OF SOFT TISSUE
     Dosage: UNK, CYCLIC (9 CYCLE, INITIATED WITH FULL DOSES)
  2. IFOSFAMIDE. [Suspect]
     Active Substance: IFOSFAMIDE
     Dosage: UNK, CYCLIC (DOSE REDUCTIONS)
  3. GRANULOCYTE COLONY STIMULATING FACTOR [Concomitant]
     Active Substance: GRANULOCYTE COLONY-STIMULATING FACTOR NOS
     Indication: PROPHYLAXIS
     Dosage: UNK
  4. IFOSFAMIDE. [Suspect]
     Active Substance: IFOSFAMIDE
     Indication: PERIPHERAL PRIMITIVE NEUROECTODERMAL TUMOUR OF SOFT TISSUE
     Dosage: UNK, CYCLIC (9 CYCLE, INITIATED FULL DOSE,ALTERNATING EVERY 3 WEEKS)
  5. DOXORUBICIN HCL [Suspect]
     Active Substance: DOXORUBICIN HYDROCHLORIDE
     Dosage: UNK, CYCLIC (DOSE REDUCTIONS)
  6. ETOPOSIDE. [Suspect]
     Active Substance: ETOPOSIDE
     Indication: PERIPHERAL PRIMITIVE NEUROECTODERMAL TUMOUR OF SOFT TISSUE
     Dosage: UNK, CYCLIC (9 CYCLE, INITIATED FULL DOSES, ALTERNATING EVERY 3 WEEKS)
  7. VINCRISTINE [Suspect]
     Active Substance: VINCRISTINE
     Dosage: UNK, CYCLIC (DOSE REDUCTIONS)
  8. ETOPOSIDE. [Suspect]
     Active Substance: ETOPOSIDE
     Dosage: UNK, CYCLIC (DOSE REDUCTIONS)
  9. CYCLOPHOSPHAMIDE. [Suspect]
     Active Substance: CYCLOPHOSPHAMIDE
     Dosage: UNK, CYCLIC (DOSE REDUCTIONS)
  10. ACTINOMYCIN D [Suspect]
     Active Substance: DACTINOMYCIN
     Indication: PERIPHERAL PRIMITIVE NEUROECTODERMAL TUMOUR OF SOFT TISSUE
     Dosage: UNK, CYCLIC (9 CYCLE, SUBSTITUTED AFTER CUMULATIVE DOSE OF 375 MG/M2)
  11. CYCLOPHOSPHAMIDE. [Suspect]
     Active Substance: CYCLOPHOSPHAMIDE
     Indication: PERIPHERAL PRIMITIVE NEUROECTODERMAL TUMOUR OF SOFT TISSUE
     Dosage: UNK, CYCLIC (9 CYCLE, INITIATED FULL DOSES)
  12. VINCRISTINE [Suspect]
     Active Substance: VINCRISTINE
     Indication: PERIPHERAL PRIMITIVE NEUROECTODERMAL TUMOUR OF SOFT TISSUE
     Dosage: UNK, CYCLIC (9 CYCLE, INITIATED WITH FULL DOSES)
  13. ACTINOMYCIN D [Suspect]
     Active Substance: DACTINOMYCIN
     Dosage: UNK, CYCLIC (DOSE REDUCTIONS)

REACTIONS (2)
  - Febrile neutropenia [Unknown]
  - Neutropenia [Unknown]
